FAERS Safety Report 13068915 (Version 20)
Quarter: 2021Q2

REPORT INFORMATION
  Report Type: Report from Study
  Country: BR (occurrence: BR)
  Receive Date: 20161228
  Receipt Date: 20210428
  Transmission Date: 20210716
  Serious: Yes (Other)
  Sender: FDA-Public Use
  Company Number: BR-GLAXOSMITHKLINE-BR2015GSK059950

PATIENT
  Age: 36 Year
  Sex: Female
  Weight: 80 kg

DRUGS (2)
  1. HYDROXYCHLOROQUINE [Concomitant]
     Active Substance: HYDROXYCHLOROQUINE
     Indication: PRODUCT USED FOR UNKNOWN INDICATION
     Dosage: 400 MG, EVERY OTHER DAY
  2. BELIMUMAB [Suspect]
     Active Substance: BELIMUMAB
     Indication: SYSTEMIC LUPUS ERYTHEMATOSUS
     Dosage: UNK
     Route: 042
     Dates: start: 20141117

REACTIONS (18)
  - Ligament disorder [Unknown]
  - Sinusitis [Unknown]
  - Oedema peripheral [Unknown]
  - Cartilage injury [Unknown]
  - Nephrolithiasis [Unknown]
  - Product dose omission issue [Unknown]
  - Circumstance or information capable of leading to medication error [Recovered/Resolved]
  - Conjunctivitis [Unknown]
  - Inappropriate schedule of product administration [Recovered/Resolved]
  - Overdose [Unknown]
  - Product availability issue [Unknown]
  - Meniscus operation [Unknown]
  - Influenza [Unknown]
  - Skin disorder [Unknown]
  - Herpes virus infection [Unknown]
  - Varicose vein operation [Unknown]
  - Renal disorder [Unknown]
  - Weight decreased [Unknown]

NARRATIVE: CASE EVENT DATE: 201601
